FAERS Safety Report 18348994 (Version 2)
Quarter: 2020Q4

REPORT INFORMATION
  Report Type: Report from Study
  Country: None (occurrence: UY)
  Receive Date: 20201006
  Receipt Date: 20201109
  Transmission Date: 20210114
  Serious: Yes (Other)
  Sender: FDA-Public Use
  Company Number: UY-ABBVIE-19K-168-2820993-00

PATIENT
  Age: 68 Year
  Sex: Female

DRUGS (1)
  1. HUMIRA [Suspect]
     Active Substance: ADALIMUMAB
     Indication: RHEUMATOID ARTHRITIS
     Route: 058
     Dates: start: 20130816

REACTIONS (10)
  - Immunodeficiency [Not Recovered/Not Resolved]
  - Tendonitis [Unknown]
  - Back pain [Recovering/Resolving]
  - Blood count abnormal [Unknown]
  - Osteoarthritis [Not Recovered/Not Resolved]
  - Medical device site joint infection [Unknown]
  - Herpes zoster [Recovering/Resolving]
  - Musculoskeletal pain [Recovering/Resolving]
  - Pain in extremity [Recovering/Resolving]
  - Groin pain [Not Recovered/Not Resolved]

NARRATIVE: CASE EVENT DATE: 2020
